FAERS Safety Report 5930507-7 (Version None)
Quarter: 2008Q4

REPORT INFORMATION
  Report Type: 
  Country: None (occurrence: None)
  Receive Date: 20081026
  Receipt Date: 20081016
  Transmission Date: 20090506
  Serious: Yes (Other)
  Sender: FDA-Public Use
  Company Number: PHHY2008BR25041

PATIENT
  Sex: Female
  Weight: 73 kg

DRUGS (2)
  1. ACLASTA [Suspect]
     Indication: OSTEITIS DEFORMANS
     Dosage: 5 MG, UNK
     Route: 042
     Dates: start: 20081008
  2. ANTIHYPERTENSIVE DRUGS [Concomitant]

REACTIONS (2)
  - ABNORMAL FAECES [None]
  - GASTRIC HAEMORRHAGE [None]
